FAERS Safety Report 5276223-9 (Version None)
Quarter: 2007Q1

REPORT INFORMATION
  Report Type: 
  Country: None (occurrence: None)
  Receive Date: 20070326
  Receipt Date: 20070319
  Transmission Date: 20070707
  Serious: Yes (Hospitalization)
  Sender: FDA-Public Use
  Company Number: ET-BOEHRINGER INGELHEIM PHARMACEUTICALS, INC.-2007-DE-01645GD

PATIENT
  Age: 26 Year
  Sex: Male

DRUGS (4)
  1. NEVIRAPINE [Suspect]
     Indication: HIV INFECTION
     Dates: start: 20040201
  2. STAVUDINE [Suspect]
     Indication: HIV INFECTION
     Dates: start: 20040201
  3. LAMIVUDINE [Suspect]
     Indication: HIV INFECTION
     Dates: start: 20040201
  4. SODIUM STIBOGLUCONATE [Concomitant]
     Indication: VISCERAL LEISHMANIASIS

REACTIONS (2)
  - CUTANEOUS LEISHMANIASIS [None]
  - IMMUNE RECONSTITUTION SYNDROME [None]
